FAERS Safety Report 9265985 (Version 2)
Quarter: 2013Q2

REPORT INFORMATION
  Report Type: Spontaneous
  Country: US (occurrence: US)
  Receive Date: 20130501
  Receipt Date: 20130613
  Transmission Date: 20140414
  Serious: Yes (Hospitalization)
  Sender: FDA-Public Use
  Company Number: US-B.I. PHARMACEUTICALS,INC./RIDGEFIELD-2013-BI-11937BP

PATIENT
  Sex: Male
  Weight: 90.72 kg

DRUGS (5)
  1. PRADAXA [Suspect]
     Indication: ANTICOAGULANT THERAPY
     Dosage: 300 MG
     Route: 048
     Dates: start: 20110418, end: 20120110
  2. COREG [Concomitant]
     Dosage: 25 MG
     Route: 048
  3. LIPITOR [Concomitant]
     Dosage: 20 MG
     Route: 048
  4. CALCITRIOL [Concomitant]
     Dosage: 0.25 MG
     Route: 048
  5. CENTRUM SILVER [Concomitant]
     Route: 048

REACTIONS (1)
  - Gastrointestinal haemorrhage [Recovered/Resolved]
